FAERS Safety Report 20456903 (Version 1)
Quarter: 2022Q1

REPORT INFORMATION
  Report Type: Spontaneous
  Country: US (occurrence: US)
  Receive Date: 20220210
  Receipt Date: 20220210
  Transmission Date: 20220423
  Serious: No
  Sender: FDA-Public Use
  Company Number: US-PERRIGO-21US002697

PATIENT
  Age: 74 Year
  Sex: Female
  Weight: 70.295 kg

DRUGS (6)
  1. CETIRIZINE HYDROCHLORIDE [Suspect]
     Active Substance: CETIRIZINE HYDROCHLORIDE
     Indication: Urticaria
     Dosage: 10 MG, QD
     Route: 048
     Dates: start: 202102
  2. CETIRIZINE HYDROCHLORIDE [Suspect]
     Active Substance: CETIRIZINE HYDROCHLORIDE
     Indication: Pruritus
  3. LOSARTAN [Concomitant]
     Active Substance: LOSARTAN
     Indication: Hypertension
     Dosage: UNKNOWN, UNKNOWN
     Route: 065
     Dates: start: 2020
  4. METFORMIN [Concomitant]
     Active Substance: METFORMIN HYDROCHLORIDE
     Indication: Glucose tolerance impaired
     Dosage: UNKNOWN, UNKNOWN
     Route: 065
     Dates: start: 2017
  5. RANITIDINE [Concomitant]
     Active Substance: RANITIDINE
     Indication: Urticaria
     Dosage: UNKNOWN, UNKNOWN
     Route: 065
     Dates: start: 20210129, end: 20210129
  6. RANITIDINE [Concomitant]
     Active Substance: RANITIDINE
     Indication: Pruritus

REACTIONS (1)
  - Off label use [Unknown]

NARRATIVE: CASE EVENT DATE: 20210129
